FAERS Safety Report 4558897-0 (Version None)
Quarter: 2005Q1

REPORT INFORMATION
  Report Type: 
  Country: None (occurrence: None)
  Receive Date: 20050121
  Receipt Date: 20050121
  Transmission Date: 20050727
  Serious: Yes (Hospitalization)
  Sender: FDA-Public Use
  Company Number: None

PATIENT
  Age: 43 Year
  Sex: Male
  Weight: 102.0593 kg

DRUGS (2)
  1. ACTOS [Suspect]
     Dosage: 1 PILL  TWICE A DAY ORAL
     Route: 048
  2. ALTACE [Suspect]
     Dosage: 1 PILL    TWICE  A DAY ORAL
     Route: 048

REACTIONS (4)
  - ANAEMIA [None]
  - ASTHENIA [None]
  - HYPOTENSION [None]
  - VOLUME BLOOD DECREASED [None]
